FAERS Safety Report 16297054 (Version 1)
Quarter: 2019Q2

REPORT INFORMATION
  Report Type: Spontaneous
  Country: US (occurrence: US)
  Receive Date: 20190405
  Receipt Date: 20190405
  Transmission Date: 20190711
  Serious: No
  Sender: FDA-Public Use
  Company Number: None

PATIENT
  Age: 39 Year
  Sex: Female

DRUGS (1)
  1. TALTZ [Suspect]
     Active Substance: IXEKIZUMAB
     Indication: PSORIASIS
     Dosage: INJECT 80MG (1 PEN) SUBCUTANEOUSLY AT WEEK 12 THEN EVERY 4 WEEKS AS DIRECTED
     Route: 058
     Dates: start: 201808

REACTIONS (3)
  - Malaise [None]
  - Emergency care [None]
  - Therapy cessation [None]
